FAERS Safety Report 18598284 (Version 1)
Quarter: 2020Q4

REPORT INFORMATION
  Report Type: Spontaneous
  Country: US (occurrence: US)
  Receive Date: 20201210
  Receipt Date: 20201210
  Transmission Date: 20210114
  Serious: Yes (Other)
  Sender: FDA-Public Use
  Company Number: US-BRISTOL-MYERS SQUIBB COMPANY-BMS-2020-102804

PATIENT
  Sex: Male

DRUGS (1)
  1. SPRYCEL [Suspect]
     Active Substance: DASATINIB
     Indication: PRODUCT USED FOR UNKNOWN INDICATION
     Dosage: UNK
     Route: 065
     Dates: start: 201911

REACTIONS (8)
  - Haematochezia [Unknown]
  - Dyspnoea [Unknown]
  - Nipple pain [Unknown]
  - Pruritus [Unknown]
  - Swelling of eyelid [Unknown]
  - Blood pressure increased [Unknown]
  - Insomnia [Unknown]
  - Gait disturbance [Unknown]
